FAERS Safety Report 9553372 (Version 1)
Quarter: 2013Q3

REPORT INFORMATION
  Report Type: Spontaneous
  Country: US (occurrence: None)
  Receive Date: 20130805
  Receipt Date: 20130805
  Transmission Date: 20140515
  Serious: Yes (Hospitalization)
  Sender: FDA-Public Use
  Company Number: AEGR000028

PATIENT
  Age: 48 Year
  Sex: Female

DRUGS (15)
  1. JUXTAPID(LOMITAPIDE)CAPSULE,5MG [Suspect]
     Indication: TYPE IIA HYPERLIPIDAEMIA
     Route: 048
     Dates: start: 20130127
  2. ALBUTEROL(SALBUTAMOL SULFATE)INHALER [Concomitant]
  3. ASPIRIN(ACETYLSALICYLIC ACID) [Concomitant]
  4. CRESTOR(ROSUVASTATIN CALCIUM) [Concomitant]
  5. IMDUR(ISOSORBIDE MONONITRATE) [Concomitant]
  6. LEVOTHYROXINE(LEVOTHYROXINE SODIUM) [Concomitant]
  7. LOVAZA(OMEGA-3-ACID ETHYL ESTER) [Concomitant]
  8. METOPROLOL(METOPROLOL TARTRATE) [Concomitant]
  9. PLAVIX(CLOPIDOGREL BISUFLATE) [Concomitant]
  10. RANEXA(RANOLAZINE) [Concomitant]
  11. ZETIA(EZETIMIBE) [Concomitant]
  12. VITAMIN E (TOCOPHEROL) [Concomitant]
  13. NITROGLYCERIN(GLYCERYL TRINITRATE) [Concomitant]
  14. VICODIN(HYDROCODONE BIARTRATE, PACACETAMOL) [Concomitant]
  15. SKELAXIN(METAXALONE) [Concomitant]

REACTIONS (1)
  - Chest pain [None]
